FAERS Safety Report 23394700 (Version 1)
Quarter: 2024Q1

REPORT INFORMATION
  Report Type: Spontaneous
  Country: DE (occurrence: DE)
  Receive Date: 20240112
  Receipt Date: 20240112
  Transmission Date: 20240410
  Serious: Yes (Hospitalization)
  Sender: FDA-Public Use
  Company Number: DE-BoehringerIngelheim-2024-BI-000820

PATIENT
  Age: 84 Year
  Sex: Female

DRUGS (1)
  1. DABIGATRAN [Suspect]
     Active Substance: DABIGATRAN
     Indication: Product used for unknown indication

REACTIONS (4)
  - Lethargy [Unknown]
  - Oliguria [Unknown]
  - Pericardial haemorrhage [Unknown]
  - Renal impairment [Unknown]
